FAERS Safety Report 4837230-0 (Version None)
Quarter: 2005Q4

REPORT INFORMATION
  Report Type: 
  Country: None (occurrence: None)
  Receive Date: 20051122
  Receipt Date: 20051107
  Transmission Date: 20060501
  Serious: Yes (Other)
  Sender: FDA-Public Use
  Company Number: USA0510111685

PATIENT
  Age: 50 Year
  Sex: Female
  Weight: 103.6 kg

DRUGS (7)
  1. CYMBALTA [Suspect]
     Indication: DEPRESSION
     Dosage: 60 MG
  2. LIPITOR [Concomitant]
  3. VICOPROFEN [Concomitant]
  4. TOPAMAX [Concomitant]
  5. RELPAX (ELETRIPTAN HYDROBROMIDE) [Concomitant]
  6. CLARINEX [Concomitant]
  7. LORAZEPAM [Concomitant]

REACTIONS (3)
  - ALANINE AMINOTRANSFERASE INCREASED [None]
  - ASPARTATE AMINOTRANSFERASE INCREASED [None]
  - BLOOD ALKALINE PHOSPHATASE INCREASED [None]
